FAERS Safety Report 6012454-8 (Version None)
Quarter: 2008Q4

REPORT INFORMATION
  Report Type: 
  Country: None (occurrence: None)
  Receive Date: 20081216
  Receipt Date: 20080710
  Transmission Date: 20090506
  Serious: Yes (Other)
  Sender: FDA-Public Use
  Company Number: US-WYE-H05056908

PATIENT
  Age: 44 Year
  Sex: Female
  Weight: 99.88 kg

DRUGS (1)
  1. EFFEXOR [Suspect]
     Indication: MAJOR DEPRESSION
     Dosage: 225 MG 1X PER 1 DAY, ORAL
     Route: 048
     Dates: end: 20080514

REACTIONS (1)
  - HAIR GROWTH ABNORMAL [None]
